FAERS Safety Report 16318560 (Version 1)
Quarter: 2019Q2

REPORT INFORMATION
  Report Type: Spontaneous
  Country: US (occurrence: US)
  Receive Date: 20190409
  Receipt Date: 20190409
  Transmission Date: 20190711
  Serious: No
  Sender: FDA-Public Use
  Company Number: None

PATIENT
  Age: 61 Year
  Sex: Female
  Weight: 67.13 kg

DRUGS (6)
  1. 9 AMINO ACIDS [Concomitant]
  2. ALPRAZOLAM. [Concomitant]
     Active Substance: ALPRAZOLAM
  3. VITAMIN C [Concomitant]
     Active Substance: ASCORBIC ACID
  4. VITAMIN D3 [Concomitant]
     Active Substance: CHOLECALCIFEROL
  5. AZITHROMYCIN TABLETS, 250MG [Suspect]
     Active Substance: AZITHROMYCIN
     Indication: DENTAL DISORDER PROPHYLAXIS
     Dosage: ?          QUANTITY:6 DF DOSAGE FORM;?
     Route: 048
     Dates: start: 20190313, end: 20190317
  6. OMEGA XL [Concomitant]
     Active Substance: DIETARY SUPPLEMENT

REACTIONS (6)
  - Cardiac flutter [None]
  - Arthralgia [None]
  - Tinnitus [None]
  - Faeces discoloured [None]
  - Anorectal discomfort [None]
  - Dysphonia [None]

NARRATIVE: CASE EVENT DATE: 20190315
